FAERS Safety Report 7826230-4 (Version None)
Quarter: 2011Q4

REPORT INFORMATION
  Report Type: 
  Country: None (occurrence: None)
  Receive Date: 20111020
  Receipt Date: 20111012
  Transmission Date: 20120403
  Serious: Yes (Death, Other)
  Sender: FDA-Public Use
  Company Number: US-BIOGENIDEC-2011BI039011

PATIENT
  Sex: Female

DRUGS (2)
  1. AVONEX [Suspect]
     Indication: MULTIPLE SCLEROSIS
     Route: 030
     Dates: start: 20080620, end: 20110413
  2. AVONEX [Suspect]
     Route: 030
     Dates: start: 20000614, end: 20080215

REACTIONS (2)
  - CARDIAC FAILURE [None]
  - UROSEPSIS [None]
